FAERS Safety Report 20632565 (Version 9)
Quarter: 2022Q4

REPORT INFORMATION
  Report Type: Report from Study
  Country: US (occurrence: US)
  Receive Date: 20220324
  Receipt Date: 20221020
  Transmission Date: 20230112
  Serious: Yes (Hospitalization, Other)
  Sender: FDA-Public Use
  Company Number: US-NOVARTISTESTPH-NVSC2022US066897

PATIENT
  Sex: Female

DRUGS (1)
  1. ADAKVEO [Suspect]
     Active Substance: CRIZANLIZUMAB-TMCA
     Indication: Product used for unknown indication
     Dosage: UNK (LAST TREATMENT WAS EITHER NOVEMBER, DECEMBER OR JANUARY)
     Route: 065

REACTIONS (12)
  - Illness [Unknown]
  - Headache [Unknown]
  - Vomiting [Unknown]
  - Haemoglobin decreased [Not Recovered/Not Resolved]
  - Malaise [Unknown]
  - Hypotension [Recovering/Resolving]
  - Asthenia [Unknown]
  - Dehydration [Unknown]
  - Fatigue [Unknown]
  - Somnolence [Unknown]
  - Pruritus [Unknown]
  - Drug ineffective [Unknown]
